FAERS Safety Report 20506371 (Version 1)
Quarter: 2022Q1

REPORT INFORMATION
  Report Type: Spontaneous
  Country: US (occurrence: None)
  Receive Date: 20220223
  Receipt Date: 20220223
  Transmission Date: 20220423
  Serious: No
  Sender: FDA-Public Use
  Company Number: None

PATIENT
  Sex: Male

DRUGS (1)
  1. RISPERIDONE [Suspect]
     Active Substance: RISPERIDONE
     Indication: Illness
     Dosage: 1MG TWICE ORAL?
     Route: 048
     Dates: start: 202201

REACTIONS (4)
  - Arthralgia [None]
  - Myalgia [None]
  - Dyspnoea [None]
  - Therapy cessation [None]
